FAERS Safety Report 4652066-1 (Version None)
Quarter: 2005Q2

REPORT INFORMATION
  Report Type: 
  Country: None (occurrence: None)
  Receive Date: 20050502
  Receipt Date: 20050422
  Transmission Date: 20051028
  Serious: Yes (Disabling)
  Sender: FDA-Public Use
  Company Number: 2005035698

PATIENT
  Age: 68 Year
  Sex: Female
  Weight: 63.5036 kg

DRUGS (5)
  1. NARDIL [Suspect]
     Indication: DEPRESSION
     Dosage: 30 MG (15 MG, 1 IN 1 D), ORAL
     Route: 048
  2. NARDIL [Suspect]
     Indication: OBSESSIVE-COMPULSIVE DISORDER
     Dosage: 30 MG (15 MG, 1 IN 1 D), ORAL
     Route: 048
  3. LEVOTHYROXINE SODIUM [Concomitant]
  4. ALL OTHER NON-THERAPEUTIC PRODUCTS (ALL OTHER NON-THERAPEUTIC PRODUCTS [Concomitant]
  5. CLONAZEPAM [Concomitant]

REACTIONS (5)
  - DEAFNESS [None]
  - FATIGUE [None]
  - NASAL CONGESTION [None]
  - NASOPHARYNGITIS [None]
  - SINUS DISORDER [None]
